FAERS Safety Report 5729352-7 (Version None)
Quarter: 2008Q2

REPORT INFORMATION
  Report Type: 
  Country: None (occurrence: None)
  Receive Date: 20080506
  Receipt Date: 20080424
  Transmission Date: 20081010
  Serious: Yes (Other)
  Sender: FDA-Public Use
  Company Number: JP-PFIZER INC-2008036873

PATIENT
  Age: 70 Year
  Sex: Female

DRUGS (2)
  1. SALAZOPYRIN [Suspect]
     Route: 048
     Dates: start: 20080201, end: 20080301
  2. MIYARI BACTERIA [Concomitant]
     Route: 048

REACTIONS (1)
  - DRUG RASH WITH EOSINOPHILIA AND SYSTEMIC SYMPTOMS [None]
